FAERS Safety Report 8849944 (Version 2)
Quarter: 2012Q4

REPORT INFORMATION
  Report Type: Report from Study
  Country: JP (occurrence: JP)
  Receive Date: 20121019
  Receipt Date: 20121231
  Transmission Date: 20130627
  Serious: Yes (Other)
  Sender: FDA-Public Use
  Company Number: JP-VERTEX PHARMACEUTICAL INC.-AE-2012-009098

PATIENT
  Age: 64 Year
  Sex: Male

DRUGS (11)
  1. VX-950 (TELAPREVIR) [Suspect]
     Indication: CHRONIC HEPATITIS C
     Dosage: 2250 mg, qd
     Route: 048
     Dates: start: 20120425, end: 20120628
  2. RIBAVIRIN [Suspect]
     Indication: CHRONIC HEPATITIS C
     Dosage: 800 mg, qd
     Route: 048
     Dates: start: 20120425, end: 20120523
  3. RIBAVIRIN [Suspect]
     Dosage: 400 mg, qd
     Route: 048
     Dates: start: 20120524, end: 20120620
  4. RIBAVIRIN [Suspect]
     Dosage: 200 mg, qd
     Route: 048
     Dates: start: 20120621, end: 20120711
  5. PEGINTERFERON ALFA-2B [Suspect]
     Indication: CHRONIC HEPATITIS C
     Dosage: 0.8 ?g/kg, qw
     Route: 058
     Dates: start: 20120425, end: 20120430
  6. PEGINTERFERON ALFA-2B [Suspect]
     Dosage: 0.6 ?g/kg, qw
     Route: 058
     Dates: start: 20120501
  7. URSO                               /00465701/ [Concomitant]
     Dosage: 100 mg, qd
     Route: 048
  8. THYRADIN S [Concomitant]
     Dosage: 100 ?g, qd
     Route: 048
  9. DIOVAN [Concomitant]
     Dosage: 80 mg, qd
     Route: 048
  10. AMLODIPINE                         /00972402/ [Concomitant]
     Dosage: 5 mg, qd
     Route: 048
  11. AMARYL OD [Concomitant]
     Dosage: 2 mg, qd
     Route: 048

REACTIONS (2)
  - Haemoglobin decreased [Not Recovered/Not Resolved]
  - Hepatocellular carcinoma [Recovered/Resolved]
